FAERS Safety Report 5880240-5 (Version None)
Quarter: 2008Q3

REPORT INFORMATION
  Report Type: 
  Country: None (occurrence: None)
  Receive Date: 20080911
  Receipt Date: 20080911
  Transmission Date: 20090109
  Serious: Yes (Other)
  Sender: FDA-Public Use
  Company Number: None

PATIENT
  Sex: Female
  Weight: 109.7705 kg

DRUGS (10)
  1. CRESTOR [Suspect]
     Indication: BLOOD CHOLESTEROL ABNORMAL
     Dosage: START AT 10 DAYS 2.5MGM DAILY ORAL : 5 MGM DAILY ORAL
     Route: 048
     Dates: start: 20080811, end: 20080821
  2. CRESTOR [Suspect]
     Indication: BLOOD CHOLESTEROL ABNORMAL
     Dosage: START AT 10 DAYS 2.5MGM DAILY ORAL : 5 MGM DAILY ORAL
     Route: 048
     Dates: start: 20080822, end: 20080828
  3. STARLIX [Concomitant]
  4. BYETTA [Concomitant]
  5. TOPROL-XL [Concomitant]
  6. AZOR [Concomitant]
  7. SYNTHROID [Concomitant]
  8. LANTUS [Concomitant]
  9. GLUCOSAMINE CHONDROITON [Concomitant]
  10. CQ10 [Concomitant]

REACTIONS (2)
  - BURNING SENSATION [None]
  - HEADACHE [None]
